FAERS Safety Report 7584288-4 (Version None)
Quarter: 2011Q2

REPORT INFORMATION
  Report Type: 
  Country: None (occurrence: None)
  Receive Date: 20110630
  Receipt Date: 20110621
  Transmission Date: 20111010
  Serious: Yes (Other)
  Sender: FDA-Public Use
  Company Number: PHHY2011TR55105

PATIENT
  Age: 51 Year
  Sex: Female

DRUGS (1)
  1. INDAPAMIDE [Suspect]
     Indication: HYPERTENSION
     Dosage: UNK

REACTIONS (7)
  - MALAISE [None]
  - METABOLIC ALKALOSIS [None]
  - MUSCLE SPASMS [None]
  - HYPOKALAEMIA [None]
  - PARAESTHESIA [None]
  - BLOOD CREATINE PHOSPHOKINASE INCREASED [None]
  - RHABDOMYOLYSIS [None]
